FAERS Safety Report 13263574 (Version 7)
Quarter: 2024Q2

REPORT INFORMATION
  Report Type: Report from Study
  Country: FR (occurrence: FR)
  Receive Date: 20170223
  Receipt Date: 20240419
  Transmission Date: 20240715
  Serious: Yes (Congenital Anomaly, Other)
  Sender: FDA-Public Use
  Company Number: FR-ABBVIE-16P-056-1791361-00

PATIENT
  Sex: Female

DRUGS (7)
  1. VALPROATE SODIUM [Suspect]
     Active Substance: VALPROATE SODIUM
     Indication: Maternal exposure timing unspecified
     Route: 064
  2. FOLIC ACID [Concomitant]
     Active Substance: FOLIC ACID
     Indication: Product used for unknown indication
  3. FERROUS SULFATE [Concomitant]
     Active Substance: FERROUS SULFATE
     Indication: Product used for unknown indication
     Dates: start: 20040730
  4. PHLOROGLUCINOL [Concomitant]
     Active Substance: PHLOROGLUCINOL
     Indication: Product used for unknown indication
     Dates: start: 20040730
  5. OMEPRAZOLE [Concomitant]
     Active Substance: OMEPRAZOLE
     Indication: Product used for unknown indication
     Dates: start: 20040730
  6. OLIGOSOL [Concomitant]
     Indication: Product used for unknown indication
  7. ALBUTEROL SULFATE [Concomitant]
     Active Substance: ALBUTEROL SULFATE
     Indication: Product used for unknown indication
     Dates: start: 20040730

REACTIONS (72)
  - Abnormal behaviour [Not Recovered/Not Resolved]
  - Developmental delay [Not Recovered/Not Resolved]
  - Language disorder [Unknown]
  - Hypotonia [Unknown]
  - Hypermobility syndrome [Unknown]
  - Educational problem [Unknown]
  - Ear, nose and throat examination abnormal [Unknown]
  - Haemangioma [Unknown]
  - Speech disorder developmental [Unknown]
  - Autism spectrum disorder [Unknown]
  - Seizure [Unknown]
  - Ear infection [Unknown]
  - Social (pragmatic) communication disorder [Unknown]
  - Emotional disorder [Unknown]
  - Memory impairment [Unknown]
  - Lip disorder [Unknown]
  - Cognitive disorder [Unknown]
  - Congenital scoliosis [Unknown]
  - Congenital flat feet [Unknown]
  - Dysmorphism [Unknown]
  - Hyperexplexia [Unknown]
  - Congenital nose malformation [Unknown]
  - Enuresis [Unknown]
  - Bradycardia [Unknown]
  - Hypotonic urinary bladder [Unknown]
  - Echolalia [Unknown]
  - Decreased eye contact [Unknown]
  - Visual field defect [Unknown]
  - Personal relationship issue [Unknown]
  - Conductive deafness [Unknown]
  - Foetal anticonvulsant syndrome [Unknown]
  - Nose deformity [Unknown]
  - Disturbance in attention [Unknown]
  - Social avoidant behaviour [Unknown]
  - Spina bifida [Unknown]
  - Disorientation [Unknown]
  - Affective disorder [Unknown]
  - Detrusor sphincter dyssynergia [Unknown]
  - Back pain [Unknown]
  - Anal sphincter hypertonia [Unknown]
  - Dysuria [Unknown]
  - Aggression [Unknown]
  - Visual field tests abnormal [Unknown]
  - Joint laxity [Unknown]
  - Foetal exposure during pregnancy [Unknown]
  - Dyscalculia [Unknown]
  - Birth mark [Unknown]
  - Gait disturbance [Unknown]
  - Intellectual disability [Unknown]
  - Psychomotor skills impaired [Unknown]
  - Anxiety [Unknown]
  - Agitation [Unknown]
  - Neurodevelopmental disorder [Unknown]
  - Myoclonus [Unknown]
  - Astigmatism [Unknown]
  - Educational problem [Unknown]
  - Crying [Unknown]
  - Cerumen impaction [Unknown]
  - Micrognathia [Unknown]
  - Telangiectasia [Unknown]
  - Foot deformity [Unknown]
  - Disability [Unknown]
  - Learning disorder [Unknown]
  - Gait disturbance [Unknown]
  - Withdrawal syndrome [Unknown]
  - Impaired reasoning [Unknown]
  - Anger [Unknown]
  - Disturbance in attention [Unknown]
  - Dyskinesia [Unknown]
  - Otitis media [Unknown]
  - Ear, nose and throat disorder [Unknown]
  - Dysgraphia [Unknown]

NARRATIVE: CASE EVENT DATE: 20040101
